FAERS Safety Report 6093356-8 (Version None)
Quarter: 2009Q1

REPORT INFORMATION
  Report Type: 
  Country: None (occurrence: None)
  Receive Date: 20090225
  Receipt Date: 20090225
  Transmission Date: 20090719
  Serious: No
  Sender: FDA-Public Use
  Company Number: None

PATIENT
  Age: 67 Year
  Sex: Female
  Weight: 84.8226 kg

DRUGS (1)
  1. MELOXICAM [Suspect]

REACTIONS (2)
  - ABDOMINAL PAIN [None]
  - PRODUCT QUALITY ISSUE [None]
